FAERS Safety Report 8544107-6 (Version None)
Quarter: 2012Q3

REPORT INFORMATION
  Report Type: 
  Country: None (occurrence: None)
  Receive Date: 20120727
  Receipt Date: 20120723
  Transmission Date: 20120928
  Serious: Yes (Life-Threatening, Hospitalization)
  Sender: FDA-Public Use
  Company Number: AT-PFIZER INC-2012148058

PATIENT
  Age: 73 Year
  Sex: Male
  Weight: 94 kg

DRUGS (3)
  1. XELODA [Suspect]
     Indication: BRAIN NEOPLASM MALIGNANT
     Dosage: 1250 MG/M2.
     Route: 048
     Dates: start: 20120424, end: 20120521
  2. OXALIPLATIN [Suspect]
     Indication: BRAIN NEOPLASM MALIGNANT
     Dosage: 130 MG/M2, SINGLE
     Route: 042
     Dates: start: 20120424, end: 20120516
  3. EPIRUBICIN HYDROCHLORIDE [Suspect]
     Indication: BRAIN NEOPLASM MALIGNANT
     Dosage: 50 MG/M2, SINGLE
     Route: 042
     Dates: start: 20120424, end: 20120516

REACTIONS (3)
  - NEUTROPENIC SEPSIS [None]
  - ATRIAL TACHYCARDIA [None]
  - URINARY HESITATION [None]
